FAERS Safety Report 20623374 (Version 2)
Quarter: 2022Q1

REPORT INFORMATION
  Report Type: Spontaneous
  Country: DE (occurrence: DE)
  Receive Date: 20220322
  Receipt Date: 20220331
  Transmission Date: 20220423
  Serious: Yes (Other)
  Sender: FDA-Public Use
  Company Number: DE-NOVARTISPH-NVSC2022DE064281

PATIENT
  Age: 57 Year
  Sex: Female

DRUGS (5)
  1. ETOPOSIDE [Suspect]
     Active Substance: ETOPOSIDE
     Indication: Diffuse large B-cell lymphoma
     Dosage: 196 MG (100 MG/M SQ. ADMINISTERED I.V. ON CYCLE DAYS 1, 2 AND 3. (AS PER PROTOCOL))
     Route: 042
     Dates: start: 20220218, end: 20220218
  2. CARBOPLATIN [Suspect]
     Active Substance: CARBOPLATIN
     Indication: Diffuse large B-cell lymphoma
     Dosage: 700 MG (AUC 5 MAX 800 MG ADMINISTERED I.V. ON CYCLE DAY 2. (AS PER PROTOCOL))
     Route: 042
     Dates: start: 20220219, end: 20220219
  3. RITUXIMAB [Suspect]
     Active Substance: RITUXIMAB
     Indication: Diffuse large B-cell lymphoma
     Dosage: 740 MG (ADMINISTERED AS PER LOCAL PRACTICE AT A DOSE OF 375 MG/M2 INTRAVENOUSLY ON DAY 1 OF EACH 21-
     Route: 041
     Dates: start: 20220218, end: 20220218
  4. POLATUZUMAB VEDOTIN [Suspect]
     Active Substance: POLATUZUMAB VEDOTIN
     Indication: Diffuse large B-cell lymphoma
     Dosage: 150 MG (1.8 MG/KG ADMINISTERED INTRAVENOUSLY ON DAY 1 OF EACH 21 DAY CYCLE FOR UP TO 3 CYCLES. (AS P
     Route: 042
     Dates: start: 20220218, end: 20220218
  5. IFOSFAMIDE [Suspect]
     Active Substance: IFOSFAMIDE
     Indication: Diffuse large B-cell lymphoma
     Dosage: 9800 MG (5000 MG/M SQ. ADMINISTERED I.V. OVER A 24 HR PERIOD STARTING ON CYCLE DAY 2. (AS PER PROTOC
     Route: 042
     Dates: start: 20220219, end: 20220220

REACTIONS (1)
  - COVID-19 [Recovered/Resolved]

NARRATIVE: CASE EVENT DATE: 20220305
